FAERS Safety Report 14645549 (Version 1)
Quarter: 2018Q1

REPORT INFORMATION
  Report Type: Report from Study
  Country: None (occurrence: CA)
  Receive Date: 20180316
  Receipt Date: 20180316
  Transmission Date: 20180509
  Serious: Yes (Hospitalization)
  Sender: FDA-Public Use
  Company Number: CA-ABBVIE-18K-028-2287405-00

PATIENT
  Age: 87 Year
  Sex: Male

DRUGS (2)
  1. DUODOPA [Suspect]
     Active Substance: CARBIDOPA\LEVODOPA
     Route: 050
     Dates: start: 20180202
  2. DUODOPA [Suspect]
     Active Substance: CARBIDOPA\LEVODOPA
     Indication: PARKINSON^S DISEASE
     Dosage: MORNING BOLUS 11.6 ML??CONTINUOUS DOSE RATE 6 ML/HOUR??EXTRA BOLUS AMOUNT 1 ML
     Route: 050
     Dates: start: 20170915

REACTIONS (3)
  - Cognitive disorder [Recovering/Resolving]
  - Cerebrovascular accident [Recovered/Resolved]
  - Subdural empyema [Recovered/Resolved]

NARRATIVE: CASE EVENT DATE: 2018
